FAERS Safety Report 16722493 (Version 2)
Quarter: 2019Q4

REPORT INFORMATION
  Report Type: Spontaneous
  Country: CM (occurrence: CM)
  Receive Date: 20190820
  Receipt Date: 20191017
  Transmission Date: 20200122
  Serious: Yes (Disabling)
  Sender: FDA-Public Use
  Company Number: PHHY2019CM188246

PATIENT
  Age: 33 Year
  Sex: Female

DRUGS (2)
  1. COARTEM [Suspect]
     Active Substance: ARTEMETHER\LUMEFANTRINE
     Indication: MALARIA
     Dosage: 2 DF, QD
     Route: 048
  2. IMMUNE COMPLEX [Concomitant]
     Indication: PRODUCT USED FOR UNKNOWN INDICATION
     Dosage: UNK
     Route: 065

REACTIONS (4)
  - Pruritus [Recovered/Resolved]
  - Maternal exposure during pregnancy [Unknown]
  - Vomiting [Recovered/Resolved]
  - Somnolence [Recovered/Resolved]
